FAERS Safety Report 7304930-2 (Version None)
Quarter: 2011Q1

REPORT INFORMATION
  Report Type: 
  Country: None (occurrence: None)
  Receive Date: 20110222
  Receipt Date: 20110208
  Transmission Date: 20110831
  Serious: Yes (Death, Hospitalization)
  Sender: FDA-Public Use
  Company Number: ES-CELGENEUS-144-21880-11021183

PATIENT
  Age: 78 Year
  Sex: Male

DRUGS (4)
  1. DEXAMETHASONE [Concomitant]
     Indication: CARDIAC AMYLOIDOSIS
     Route: 065
  2. PREDNISONE [Concomitant]
     Indication: CARDIAC AMYLOIDOSIS
     Route: 065
  3. SINTROM [Concomitant]
     Indication: ATRIAL FIBRILLATION
     Route: 065
  4. REVLIMID [Suspect]
     Indication: CARDIAC AMYLOIDOSIS
     Route: 048
     Dates: start: 20100101, end: 20110101

REACTIONS (3)
  - CARDIAC AMYLOIDOSIS [None]
  - PETECHIAE [None]
  - THROMBOSIS [None]
